FAERS Safety Report 4748416-8 (Version None)
Quarter: 2005Q3

REPORT INFORMATION
  Report Type: 
  Country: None (occurrence: None)
  Receive Date: 20050818
  Receipt Date: 20050809
  Transmission Date: 20060218
  Serious: Yes (Death)
  Sender: FDA-Public Use
  Company Number: 163-20785-05070240

PATIENT
  Age: 64 Year
  Sex: Male

DRUGS (9)
  1. THALOMID [Suspect]
     Indication: CHRONIC LYMPHOCYTIC LEUKAEMIA
     Dosage: 200 MG, DAILY, ORAL
     Route: 048
     Dates: start: 20050525, end: 20050608
  2. AMARYL [Concomitant]
  3. AVANDIA [Concomitant]
  4. TYLENOL [Concomitant]
  5. METOPROLOL TARTRATE [Concomitant]
  6. LASIX [Concomitant]
  7. COLCHICINE (COLCHICINE) [Concomitant]
  8. ALLOOPURINOL (ALLOPURINOL) [Concomitant]
  9. HEMOCYTE (FERROUS FUMARATE) [Concomitant]

REACTIONS (4)
  - CHRONIC LYMPHOCYTIC LEUKAEMIA [None]
  - LYMPHADENOPATHY [None]
  - MALIGNANT NEOPLASM PROGRESSION [None]
  - RESPIRATORY FAILURE [None]
